FAERS Safety Report 18462538 (Version 1)
Quarter: 2020Q4

REPORT INFORMATION
  Report Type: Spontaneous
  Country: ES (occurrence: ES)
  Receive Date: 20201104
  Receipt Date: 20201104
  Transmission Date: 20210114
  Serious: Yes (Other)
  Sender: FDA-Public Use
  Company Number: ES-TEVA-2020-ES-1844465

PATIENT
  Age: 41 Year
  Sex: Male

DRUGS (1)
  1. COPAXONE [Suspect]
     Active Substance: GLATIRAMER ACETATE
     Indication: MULTIPLE SCLEROSIS
     Dosage: COPAXONE 40 MG/ML
     Route: 058
     Dates: start: 20130101, end: 202003

REACTIONS (9)
  - Sinusitis [Recovering/Resolving]
  - Infection [Recovering/Resolving]
  - Emotional distress [Recovering/Resolving]
  - Apathy [Recovering/Resolving]
  - Dyspnoea [Recovering/Resolving]
  - Sputum abnormal [Recovering/Resolving]
  - Asthenia [Recovering/Resolving]
  - Facial pain [Recovering/Resolving]
  - Breath odour [Recovering/Resolving]

NARRATIVE: CASE EVENT DATE: 202003
